FAERS Safety Report 9137436 (Version 1)
Quarter: 2013Q1

REPORT INFORMATION
  Report Type: Spontaneous
  Country: NL (occurrence: NL)
  Receive Date: 20130304
  Receipt Date: 20130304
  Transmission Date: 20140127
  Serious: Yes (Other)
  Sender: FDA-Public Use
  Company Number: PHHY2013NL020602

PATIENT
  Sex: Male

DRUGS (1)
  1. TOBI [Suspect]
     Indication: SLEEP APNOEA SYNDROME
     Dosage: UNK CONTINUOUS

REACTIONS (1)
  - Oral neoplasm [Not Recovered/Not Resolved]
